FAERS Safety Report 7113017-3 (Version None)
Quarter: 2010Q4

REPORT INFORMATION
  Report Type: 
  Country: None (occurrence: None)
  Receive Date: 20101119
  Receipt Date: 20101111
  Transmission Date: 20110411
  Serious: Yes (Other)
  Sender: FDA-Public Use
  Company Number: ES-BAYER-201046027GPV

PATIENT
  Age: 77 Year
  Sex: Male

DRUGS (1)
  1. NEXAVAR [Suspect]
     Indication: HEPATIC NEOPLASM MALIGNANT
     Route: 048
     Dates: start: 20091116, end: 20100616

REACTIONS (2)
  - IMPAIRED HEALING [None]
  - PALMAR-PLANTAR ERYTHRODYSAESTHESIA SYNDROME [None]
